FAERS Safety Report 6340117-8 (Version None)
Quarter: 2009Q3

REPORT INFORMATION
  Report Type: 
  Country: None (occurrence: None)
  Receive Date: 20090903
  Receipt Date: 20090831
  Transmission Date: 20100115
  Serious: Yes (Other)
  Sender: FDA-Public Use
  Company Number: US-GILEAD-2009-0021305

PATIENT
  Sex: Female
  Weight: 63.56 kg

DRUGS (10)
  1. LETAIRIS [Suspect]
     Indication: PULMONARY ARTERIAL HYPERTENSION
     Route: 048
     Dates: start: 20090219
  2. DIGOXIN [Concomitant]
  3. COUMADIN [Concomitant]
  4. LASIX [Concomitant]
  5. TYLENOL (CAPLET) [Concomitant]
  6. NEURONTIN [Concomitant]
  7. NABUMETONE [Concomitant]
  8. MISOPROSTOL [Concomitant]
  9. COSOPT EYE DROPS [Concomitant]
  10. FORTICAL [Concomitant]

REACTIONS (1)
  - NEUROLOGICAL SYMPTOM [None]
